FAERS Safety Report 5771484-1 (Version None)
Quarter: 2008Q2

REPORT INFORMATION
  Report Type: 
  Country: None (occurrence: None)
  Receive Date: 20080611
  Receipt Date: 20080603
  Transmission Date: 20081010
  Serious: Yes (Hospitalization, Other)
  Sender: FDA-Public Use
  Company Number: 19450

PATIENT
  Age: 13 Year
  Sex: Male

DRUGS (4)
  1. METHOTREXATE [Suspect]
     Indication: ACUTE LYMPHOCYTIC LEUKAEMIA
     Dosage: 2 G/M2
  2. CEFTRIAXONE [Concomitant]
  3. TEICOPLANIN [Concomitant]
  4. CIPROFLOXACIN HCL [Concomitant]

REACTIONS (11)
  - ANORECTAL DISORDER [None]
  - BLISTER [None]
  - CHEST PAIN [None]
  - DIARRHOEA HAEMORRHAGIC [None]
  - DYSPHAGIA [None]
  - ERYTHEMA [None]
  - FEBRILE NEUTROPENIA [None]
  - GASTROENTERITIS [None]
  - LIP DISORDER [None]
  - ORAL DISORDER [None]
  - SKIN EXFOLIATION [None]
